FAERS Safety Report 6217285-1 (Version None)
Quarter: 2009Q2

REPORT INFORMATION
  Report Type: 
  Country: None (occurrence: None)
  Receive Date: 20090608
  Receipt Date: 20090602
  Transmission Date: 20091009
  Serious: Yes (Hospitalization)
  Sender: FDA-Public Use
  Company Number: FR-BRISTOL-MYERS SQUIBB COMPANY-14648596

PATIENT
  Age: 25 Year
  Sex: Female

DRUGS (2)
  1. SUSTIVA [Suspect]
     Indication: HIV INFECTION
     Dosage: 1 TABLET DAILY. INITIALLY STARTED ON JULY 2006.
     Route: 048
     Dates: start: 20060920, end: 20070117
  2. TRUVADA [Suspect]
     Indication: HIV INFECTION
     Route: 048
     Dates: start: 20060704, end: 20070117

REACTIONS (1)
  - TUBULOINTERSTITIAL NEPHRITIS [None]
